FAERS Safety Report 24122290 (Version 3)
Quarter: 2024Q3

REPORT INFORMATION
  Report Type: Report from Study
  Country: US (occurrence: US)
  Receive Date: 20240722
  Receipt Date: 20240912
  Transmission Date: 20241016
  Serious: Yes (Other)
  Sender: ABBVIE
  Company Number: US-ABBVIE-5841452

PATIENT
  Sex: Female
  Weight: 65 kg

DRUGS (5)
  1. SKYRIZI [Suspect]
     Active Substance: RISANKIZUMAB-RZAA
     Indication: Psoriasis
     Route: 058
     Dates: start: 20210917, end: 20210917
  2. VANCOMYCIN [Concomitant]
     Active Substance: VANCOMYCIN
     Indication: Clostridium difficile infection
     Route: 048
  3. AMOXICILLIN [Suspect]
     Active Substance: AMOXICILLIN
     Indication: Infection prophylaxis
     Dosage: FORM STRENGTH 500 MILLIGRAM?DAILY DOSE 2000 MILLIGRAM
     Route: 048
     Dates: start: 20240620, end: 20240620
  4. AMOXICILLIN [Suspect]
     Active Substance: AMOXICILLIN
     Indication: Infection prophylaxis
     Dosage: FORM STRENGTH 500 MILLIGRAM?DAILY DOSE 2000 MILLIGRAM
     Route: 048
     Dates: start: 20240606, end: 20240606
  5. Cholestyramine pack [Concomitant]
     Indication: Diarrhoea

REACTIONS (10)
  - Dental implantation [Recovered/Resolved]
  - Clostridium difficile infection [Recovered/Resolved]
  - Psoriasis [Not Recovered/Not Resolved]
  - Nervousness [Unknown]
  - Drug ineffective [Not Recovered/Not Resolved]
  - Diarrhoea [Recovered/Resolved]
  - Malaise [Unknown]
  - Abdominal pain upper [Recovered/Resolved]
  - Skin disorder [Not Recovered/Not Resolved]
  - Drug hypersensitivity [Unknown]

NARRATIVE: CASE EVENT DATE: 20240101
